FAERS Safety Report 11625251 (Version 1)
Quarter: 2015Q4

REPORT INFORMATION
  Report Type: Spontaneous
  Country: DE (occurrence: DE)
  Receive Date: 20151013
  Receipt Date: 20151013
  Transmission Date: 20160304
  Serious: Yes (Other)
  Sender: FDA-Public Use
  Company Number: DE-JNJFOC-20151003035

PATIENT
  Age: 39 Year
  Sex: Female

DRUGS (2)
  1. REGAINE MAENNER [Suspect]
     Active Substance: MINOXIDIL
     Route: 061
  2. REGAINE MAENNER [Suspect]
     Active Substance: MINOXIDIL
     Indication: ANDROGENETIC ALOPECIA
     Route: 061
     Dates: end: 2015

REACTIONS (3)
  - Exposure during pregnancy [Recovered/Resolved]
  - Product use issue [Recovered/Resolved]
  - Abortion spontaneous [Recovered/Resolved]

NARRATIVE: CASE EVENT DATE: 2015
